FAERS Safety Report 15306226 (Version 1)
Quarter: 2018Q3

REPORT INFORMATION
  Report Type: Spontaneous
  Country: US (occurrence: US)
  Receive Date: 20180822
  Receipt Date: 20180822
  Transmission Date: 20181010
  Serious: Yes (Hospitalization)
  Sender: FDA-Public Use
  Company Number: US-PFIZER INC-2018334420

PATIENT
  Age: 72 Year
  Sex: Female
  Weight: 172.3 kg

DRUGS (1)
  1. VANTIN [Suspect]
     Active Substance: CEFPODOXIME PROXETIL
     Indication: ESCHERICHIA URINARY TRACT INFECTION
     Dosage: UNK
     Route: 048
     Dates: start: 20180801

REACTIONS (2)
  - Urosepsis [Recovering/Resolving]
  - Drug ineffective [Recovering/Resolving]

NARRATIVE: CASE EVENT DATE: 20180802
